FAERS Safety Report 25348060 (Version 2)
Quarter: 2025Q2

REPORT INFORMATION
  Report Type: Spontaneous
  Country: CZ (occurrence: CZ)
  Receive Date: 20250522
  Receipt Date: 20250530
  Transmission Date: 20250716
  Serious: Yes (Other)
  Sender: MYLAN
  Company Number: CZ-ASTRAZENECA-202504EEA028176CZ

PATIENT
  Age: 57 Year
  Sex: Male

DRUGS (6)
  1. ABIRATERONE [Suspect]
     Active Substance: ABIRATERONE
     Indication: Hormone-refractory prostate cancer
  2. OLAPARIB [Suspect]
     Active Substance: OLAPARIB
     Indication: Hormone-refractory prostate cancer
  3. DOCETAXEL [Concomitant]
     Active Substance: DOCETAXEL
  4. PREDNISONE [Concomitant]
     Active Substance: PREDNISONE
  5. FENTANYL [Concomitant]
     Active Substance: FENTANYL
     Indication: Pain
  6. FENTANYL [Concomitant]
     Active Substance: FENTANYL

REACTIONS (4)
  - Malignant neoplasm progression [Unknown]
  - Metastases to liver [Unknown]
  - Metastases to bone [Unknown]
  - Product use issue [Unknown]
